FAERS Safety Report 10136197 (Version 3)
Quarter: 2014Q2

REPORT INFORMATION
  Report Type: Spontaneous
  Country: CN (occurrence: CN)
  Receive Date: 20140429
  Receipt Date: 20140515
  Transmission Date: 20141212
  Serious: Yes (Hospitalization)
  Sender: FDA-Public Use
  Company Number: CN-JNJFOC-20140411489

PATIENT
  Age: 62 Year
  Sex: Male

DRUGS (8)
  1. TYLENOL [Suspect]
     Route: 048
  2. TYLENOL [Suspect]
     Indication: PNEUMONIA
     Route: 048
     Dates: start: 20130823, end: 20130826
  3. ZITHROMAX [Suspect]
     Indication: PNEUMONIA
     Route: 048
     Dates: start: 20130821, end: 20130907
  4. LEVOFLOXACIN [Suspect]
     Indication: PNEUMONIA
     Route: 042
     Dates: start: 20130821, end: 20130825
  5. CEFTRIAXONE SODIUM [Suspect]
     Indication: PNEUMONIA
     Route: 042
     Dates: start: 20130826, end: 20130907
  6. LEUCOGEN [Suspect]
     Indication: PNEUMONIA
     Route: 048
     Dates: start: 20130821, end: 20130907
  7. HERBAL PREPARATION [Suspect]
     Indication: PNEUMONIA
     Route: 048
     Dates: start: 20130821, end: 20130907
  8. AMINOPYRINE [Suspect]
     Indication: PNEUMONIA
     Route: 030
     Dates: start: 20130823, end: 20130823

REACTIONS (1)
  - Drug eruption [Recovered/Resolved]
